FAERS Safety Report 7578113-5 (Version None)
Quarter: 2011Q2

REPORT INFORMATION
  Report Type: 
  Country: None (occurrence: None)
  Receive Date: 20110621
  Receipt Date: 20110615
  Transmission Date: 20111010
  Serious: Yes (Hospitalization)
  Sender: FDA-Public Use
  Company Number: 2011SP028362

PATIENT
  Age: 49 Year
  Sex: Male

DRUGS (1)
  1. REMERON [Suspect]
     Indication: DEPRESSION
     Dosage: 15 MG;QD;PO
     Route: 048
     Dates: start: 20110601, end: 20110601

REACTIONS (2)
  - CONDITION AGGRAVATED [None]
  - DEPRESSION [None]
